FAERS Safety Report 24157393 (Version 2)
Quarter: 2024Q3

REPORT INFORMATION
  Report Type: Report from Study
  Country: US (occurrence: None)
  Receive Date: 20240731
  Receipt Date: 20240802
  Transmission Date: 20241017
  Serious: Yes (Hospitalization, Other)
  Sender: ASTRAZENECA
  Company Number: 2024A171641

PATIENT
  Age: 51 Year
  Sex: Male
  Weight: 83.5 kg

DRUGS (2)
  1. TEZSPIRE [Suspect]
     Active Substance: TEZEPELUMAB-EKKO
     Indication: Asthma
     Dosage: 210 MG/1.91 ML (110 MG/ML)
     Route: 058
     Dates: start: 20240516
  2. BREZTRI [Suspect]
     Active Substance: BUDESONIDE\FORMOTEROL\GLYCOPYRROLATE
     Dosage: 160 MCG-9 MCG-4.8 MCG
     Route: 055
     Dates: start: 20230213

REACTIONS (19)
  - Oxygen saturation decreased [Unknown]
  - Rhonchi [Unknown]
  - Hiatus hernia [Unknown]
  - Chronic gastritis [Unknown]
  - Pneumonia [Unknown]
  - Wheezing [Unknown]
  - Nasal congestion [Unknown]
  - Night sweats [Unknown]
  - Upper-airway cough syndrome [Unknown]
  - Rhinorrhoea [Unknown]
  - Dyspnoea [Unknown]
  - Chest discomfort [Unknown]
  - Chronic kidney disease [Unknown]
  - Mallampati score [Unknown]
  - Nasal turbinate abnormality [Unknown]
  - Nasal polyps [Unknown]
  - Sinusitis [Unknown]
  - Obstructive sleep apnoea syndrome [Unknown]
  - Drug ineffective [Unknown]
